FAERS Safety Report 6307523-9 (Version None)
Quarter: 2009Q3

REPORT INFORMATION
  Report Type: 
  Country: None (occurrence: None)
  Receive Date: 20090813
  Receipt Date: 20090804
  Transmission Date: 20100115
  Serious: Yes (Other)
  Sender: FDA-Public Use
  Company Number: TW-JNJFOC-20090803736

PATIENT
  Sex: Male

DRUGS (2)
  1. RISPERDAL [Suspect]
     Indication: SCHIZOPHRENIA
     Route: 048
  2. ARTANE [Suspect]
     Indication: EXTRAPYRAMIDAL DISORDER
     Route: 048

REACTIONS (3)
  - DIZZINESS [None]
  - FALL [None]
  - PALLOR [None]
